FAERS Safety Report 9676021 (Version 2)
Quarter: 2013Q4

REPORT INFORMATION
  Report Type: Report from Study
  Country: US (occurrence: US)
  Receive Date: 20131107
  Receipt Date: 20131204
  Transmission Date: 20140711
  Serious: Yes (Other)
  Sender: FDA-Public Use
  Company Number: PHEH2013US023162

PATIENT
  Sex: Male

DRUGS (8)
  1. GLEEVEC [Suspect]
     Indication: CHRONIC MYELOID LEUKAEMIA
     Dosage: 100 MG, Q6H
     Route: 048
     Dates: start: 1990
  2. GLEEVEC [Suspect]
     Dosage: 800 MG, UNK
     Dates: start: 200210
  3. GLEEVEC [Suspect]
     Dosage: 400 MG, UNK
  4. MULTIVITAMINS [Concomitant]
     Dosage: UNK UKN, QD
  5. L ARGININ [Concomitant]
     Dosage: 1000 MG, DAILY
  6. ASPIRIN [Concomitant]
     Dosage: 81 MG, DAILY
  7. PRILOSEC [Concomitant]
     Dosage: 20.6 MG, DAILY
  8. FISH OIL [Concomitant]
     Dosage: 2000 MG, DAILY

REACTIONS (28)
  - Tendon rupture [Unknown]
  - Meniscus injury [Unknown]
  - Lower limb fracture [Unknown]
  - Patella fracture [Unknown]
  - Renal failure chronic [Unknown]
  - Coronary artery disease [Unknown]
  - Epicondylitis [Unknown]
  - Nephrolithiasis [Unknown]
  - Graft versus host disease [Unknown]
  - Bone cyst [Unknown]
  - Cataract [Unknown]
  - Chronic myeloid leukaemia [Unknown]
  - Leukaemia recurrent [Unknown]
  - Morton^s neuralgia [Unknown]
  - Joint crepitation [Unknown]
  - Drug intolerance [Unknown]
  - Porokeratosis [Unknown]
  - Osteoarthritis [Unknown]
  - Hyperlipidaemia [Unknown]
  - Asthenia [Unknown]
  - Gout [Unknown]
  - Hypertension [Unknown]
  - Muscle spasms [Unknown]
  - Musculoskeletal pain [Unknown]
  - Gastrooesophageal reflux disease [Unknown]
  - Nausea [Unknown]
  - Oral herpes [Unknown]
  - Abdominal pain [Unknown]
